FAERS Safety Report 12298961 (Version 1)
Quarter: 2016Q2

REPORT INFORMATION
  Report Type: Spontaneous
  Country: ES (occurrence: ES)
  Receive Date: 20160425
  Receipt Date: 20160425
  Transmission Date: 20160815
  Serious: Yes (Other)
  Sender: FDA-Public Use
  Company Number: ES-ACCORD-039859

PATIENT
  Age: 62 Year
  Sex: Female

DRUGS (4)
  1. DOCETAXEL. [Suspect]
     Active Substance: DOCETAXEL
     Indication: NEUROENDOCRINE BREAST TUMOUR
     Dosage: THE FIRST CYCLE INVOLVED 80 MG/M2; EVERY 21 DAYS
  2. TRASTUZUMAB [Suspect]
     Active Substance: TRASTUZUMAB
     Indication: NEUROENDOCRINE BREAST TUMOUR
     Dosage: THE FIRST CYCLE; EVERY 21 DAYS
  3. CARBOPLATIN. [Suspect]
     Active Substance: CARBOPLATIN
     Indication: NEUROENDOCRINE BREAST TUMOUR
     Dosage: THE FIRST CYCLE; EVERY 21 DAYS
  4. LETROZOLE. [Suspect]
     Active Substance: LETROZOLE
     Indication: HORMONE THERAPY

REACTIONS (3)
  - Off label use [Unknown]
  - Ventricular hypokinesia [Recovered/Resolved]
  - Diarrhoea [Unknown]
